FAERS Safety Report 22388584 (Version 1)
Quarter: 2023Q2

REPORT INFORMATION
  Report Type: Spontaneous
  Country: US (occurrence: None)
  Receive Date: 20230529
  Receipt Date: 20230529
  Transmission Date: 20230721
  Serious: No
  Sender: FDA-Public Use
  Company Number: None

PATIENT
  Age: 74 Year
  Sex: Female

DRUGS (2)
  1. RYBELSUS [Suspect]
     Active Substance: SEMAGLUTIDE
     Indication: Diabetes mellitus
     Dosage: OTHER QUANTITY : 1 TABLET(S);?FREQUENCY : DAILY;?
     Route: 048
     Dates: start: 20230527, end: 20230529
  2. OZEMPIC [Suspect]
     Active Substance: SEMAGLUTIDE

REACTIONS (14)
  - Documented hypersensitivity to administered product [None]
  - Abdominal pain upper [None]
  - Nausea [None]
  - Headache [None]
  - Dizziness [None]
  - Gait disturbance [None]
  - Peripheral swelling [None]
  - Peripheral swelling [None]
  - Musculoskeletal stiffness [None]
  - Pain [None]
  - Blood glucose increased [None]
  - Insomnia [None]
  - Asthenia [None]
  - Joint swelling [None]

NARRATIVE: CASE EVENT DATE: 20230528
